FAERS Safety Report 5576172-2 (Version None)
Quarter: 2007Q4

REPORT INFORMATION
  Report Type: 
  Country: None (occurrence: None)
  Receive Date: 20071228
  Receipt Date: 20071220
  Transmission Date: 20080405
  Serious: Yes (Other)
  Sender: FDA-Public Use
  Company Number: GB-AVENTIS-200721187GDDC

PATIENT
  Age: 50 Year
  Sex: Male
  Weight: 89.1 kg

DRUGS (2)
  1. DETEMIR [Suspect]
     Route: 058
     Dates: start: 20070724
  2. NOVOPEN [Suspect]

REACTIONS (1)
  - DEEP VEIN THROMBOSIS [None]
